FAERS Safety Report 22319894 (Version 1)
Quarter: 2023Q2

REPORT INFORMATION
  Report Type: Spontaneous
  Country: US (occurrence: US)
  Receive Date: 20230515
  Receipt Date: 20230515
  Transmission Date: 20230722
  Serious: No
  Sender: FDA-Public Use
  Company Number: US-INSUD PHARMA-2305US02845

PATIENT

DRUGS (1)
  1. CLOBETASOL [Suspect]
     Active Substance: CLOBETASOL
     Indication: Skin disorder
     Dosage: UNK
     Route: 061

REACTIONS (6)
  - Skin disorder [Not Recovered/Not Resolved]
  - Condition aggravated [Not Recovered/Not Resolved]
  - Therapeutic product effect decreased [Not Recovered/Not Resolved]
  - Poor quality product administered [Unknown]
  - Product physical consistency issue [Unknown]
  - Product complaint [Unknown]
